FAERS Safety Report 6045926-0 (Version None)
Quarter: 2009Q1

REPORT INFORMATION
  Report Type: 
  Country: None (occurrence: None)
  Receive Date: 20090116
  Receipt Date: 20090102
  Transmission Date: 20090719
  Serious: Yes (Hospitalization)
  Sender: FDA-Public Use
  Company Number: 2008AL007360

PATIENT
  Age: 54 Year
  Sex: Female

DRUGS (11)
  1. DICLOFENAC SODIUM [Suspect]
     Indication: TOOTH EXTRACTION
     Dosage: ; PO
     Route: 048
  2. FEVERALL [Suspect]
     Indication: TOOTH EXTRACTION
     Route: 054
  3. HERBAL REMEDIES [Concomitant]
  4. LOVAZA [Concomitant]
  5. OMEGA-6 [Concomitant]
  6. DIRLA [Concomitant]
  7. SINK [Concomitant]
  8. PLAQUE OFF [Concomitant]
  9. B-VITAMIN [Concomitant]
  10. BETAKAROTEN [Concomitant]
  11. MAGNESIUM SULFATE [Concomitant]

REACTIONS (1)
  - HEPATITIS TOXIC [None]
